FAERS Safety Report 14306446 (Version 1)
Quarter: 2017Q4

REPORT INFORMATION
  Report Type: Report from Study
  Country: US (occurrence: US)
  Receive Date: 20171220
  Receipt Date: 20171220
  Transmission Date: 20180321
  Serious: Yes (Death)
  Sender: FDA-Public Use
  Company Number: US-TORRENT-00005412

PATIENT
  Age: 26 Year
  Sex: Male

DRUGS (4)
  1. DIHYDROERGOCORNINE [Suspect]
     Active Substance: DIHYDROERGOCORNINE
     Indication: PRODUCT USED FOR UNKNOWN INDICATION
     Route: 048
  2. CAFFEINE. [Suspect]
     Active Substance: CAFFEINE
     Indication: PRODUCT USED FOR UNKNOWN INDICATION
     Route: 048
  3. DIHYDROERGOCRISTINE [Suspect]
     Active Substance: DIHYDROERGOCRISTINE
     Indication: PRODUCT USED FOR UNKNOWN INDICATION
     Route: 048
  4. CITALOPRAM [Suspect]
     Active Substance: CITALOPRAM HYDROBROMIDE
     Indication: PRODUCT USED FOR UNKNOWN INDICATION
     Route: 048

REACTIONS (2)
  - Intentional product misuse [Fatal]
  - Toxicity to various agents [Fatal]
